FAERS Safety Report 17910278 (Version 2)
Quarter: 2020Q3

REPORT INFORMATION
  Report Type: Spontaneous
  Country: TR (occurrence: TR)
  Receive Date: 20200617
  Receipt Date: 20200710
  Transmission Date: 20201103
  Serious: Yes (Death, Life-Threatening, Hospitalization)
  Sender: FDA-Public Use
  Company Number: TR-BRISTOL-MYERS SQUIBB COMPANY-BMS-2020-047724

PATIENT
  Age: 74 Year
  Sex: Female
  Weight: 92 kg

DRUGS (1)
  1. YERVOY [Suspect]
     Active Substance: IPILIMUMAB
     Indication: MALIGNANT MELANOMA
     Dosage: 240 MILLIGRAM, QMO
     Route: 042
     Dates: start: 20200226, end: 20200318

REACTIONS (3)
  - COVID-19 [Fatal]
  - Off label use [Unknown]
  - Prescribed underdose [Unknown]
